FAERS Safety Report 6292206-4 (Version None)
Quarter: 2009Q3

REPORT INFORMATION
  Report Type: 
  Country: None (occurrence: None)
  Receive Date: 20090731
  Receipt Date: 20090720
  Transmission Date: 20100115
  Serious: Yes (Other)
  Sender: FDA-Public Use
  Company Number: GB-RANBAXY-2009RR-25807

PATIENT
  Age: 21 Year
  Sex: Female

DRUGS (2)
  1. AMOXICILLIN AND CLAVULANATE POTASSIUM [Suspect]
  2. ONE-ALPHA [Suspect]

REACTIONS (2)
  - CHOLANGITIS [None]
  - HYPERCALCAEMIA [None]
